FAERS Safety Report 20575757 (Version 3)
Quarter: 2022Q2

REPORT INFORMATION
  Report Type: Spontaneous
  Country: US (occurrence: None)
  Receive Date: 20220310
  Receipt Date: 20220401
  Transmission Date: 20220721
  Serious: Yes (Death)
  Sender: FDA-Public Use
  Company Number: US-ROCHE-3045937

PATIENT
  Sex: Female

DRUGS (1)
  1. OCREVUS [Suspect]
     Active Substance: OCRELIZUMAB
     Indication: Product used for unknown indication
     Route: 065

REACTIONS (2)
  - COVID-19 pneumonia [Fatal]
  - Cognitive disorder [Unknown]
